FAERS Safety Report 9477023 (Version 2)
Quarter: 2013Q3

REPORT INFORMATION
  Report Type: Spontaneous
  Country: JP (occurrence: JP)
  Receive Date: 20130826
  Receipt Date: 20130924
  Transmission Date: 20140515
  Serious: Yes (Death, Hospitalization)
  Sender: FDA-Public Use
  Company Number: JP-ELI_LILLY_AND_COMPANY-JP201308007202

PATIENT
  Age: 69 Year
  Sex: Male
  Weight: 59.5 kg

DRUGS (10)
  1. GEMZAR [Suspect]
     Indication: PANCREATIC CARCINOMA STAGE IV
     Dosage: 1000 MG/M2, OTHER
     Route: 042
     Dates: start: 20120621, end: 20120628
  2. GEMZAR [Suspect]
     Dosage: 800 MG/M2, OTHER
     Dates: start: 20120712, end: 20120725
  3. URSO [Concomitant]
     Indication: CHOLELITHIASIS
     Dosage: 100 MG, BID
     Route: 048
  4. NORVASC [Concomitant]
     Indication: HYPERTENSION
     Dosage: 5 MG, QD
     Route: 048
  5. SIGMART [Concomitant]
     Indication: ANGINA PECTORIS
     Dosage: 5 MG, BID
  6. MAGMITT [Concomitant]
     Indication: CONSTIPATION
     Dosage: 330 MG, TID
     Route: 048
  7. TRAMADOL HYDROCHLORIDE [Concomitant]
     Indication: CANCER PAIN
     Dosage: 1 UNK, UNK
     Route: 048
  8. BAYASPIRIN [Concomitant]
     Indication: ANGINA PECTORIS
     Dosage: 100 MG, QD
     Route: 048
  9. LIPITOR [Concomitant]
     Indication: DYSLIPIDAEMIA
     Dosage: 10 MG, QD
     Route: 048
  10. MUCODYNE [Concomitant]
     Indication: CONSTIPATION
     Dosage: 500 MG, TID
     Route: 048

REACTIONS (3)
  - Interstitial lung disease [Fatal]
  - Malignant neoplasm progression [Unknown]
  - Neutropenia [Unknown]
